FAERS Safety Report 21990718 (Version 1)
Quarter: 2023Q1

REPORT INFORMATION
  Report Type: Spontaneous
  Country: GB (occurrence: GB)
  Receive Date: 20230214
  Receipt Date: 20230214
  Transmission Date: 20230418
  Serious: Yes (Hospitalization, Other)
  Sender: FDA-Public Use
  Company Number: GB-SANOFI-01470839

PATIENT
  Age: 80 Year
  Sex: Female

DRUGS (7)
  1. BISOPROLOL [Suspect]
     Active Substance: BISOPROLOL
     Indication: Product used for unknown indication
     Dosage: UNK
     Route: 065
  2. DILTIAZEM HYDROCHLORIDE [Suspect]
     Active Substance: DILTIAZEM HYDROCHLORIDE
     Indication: Promotion of peripheral circulation
     Dosage: UNK
     Route: 065
  3. AMLODIPINE [Concomitant]
     Active Substance: AMLODIPINE BESYLATE
     Dosage: UNK
     Route: 065
  4. APIXABAN [Concomitant]
     Active Substance: APIXABAN
     Dosage: UNK
     Route: 065
  5. MICONAZOLE NITRATE [Concomitant]
     Active Substance: MICONAZOLE NITRATE
     Dosage: UNK
     Route: 065
  6. ELIQUIS [Concomitant]
     Active Substance: APIXABAN
     Dosage: UNK
     Route: 065
  7. PROCHLORPERAZINE MALEATE [Concomitant]
     Active Substance: PROCHLORPERAZINE MALEATE
     Dosage: UNK
     Route: 065

REACTIONS (17)
  - Atrial fibrillation [Unknown]
  - Skin haemorrhage [Unknown]
  - Heart rate increased [Unknown]
  - Swelling [Unknown]
  - Erythema [Unknown]
  - Balance disorder [Unknown]
  - Fungal infection [Unknown]
  - Vertigo [Unknown]
  - Irritable bowel syndrome [Unknown]
  - Spinal osteoarthritis [Unknown]
  - Osteoporosis [Unknown]
  - Skin fissures [Unknown]
  - Asthma [Unknown]
  - Pollakiuria [Unknown]
  - Peripheral swelling [Not Recovered/Not Resolved]
  - Onychomadesis [Not Recovered/Not Resolved]
  - Product use in unapproved indication [Unknown]
